FAERS Safety Report 5148297-7 (Version None)
Quarter: 2006Q4

REPORT INFORMATION
  Report Type: 
  Country: None (occurrence: None)
  Receive Date: 20061106
  Receipt Date: 20061027
  Transmission Date: 20070319
  Serious: Yes (Hospitalization)
  Sender: FDA-Public Use
  Company Number: 2006S1000187

PATIENT
  Age: 46 Year
  Sex: Male
  Weight: 89.9936 kg

DRUGS (5)
  1. SORIATANE [Suspect]
     Indication: PSORIASIS
     Dosage: 20 MG;QD;PO
     Route: 048
     Dates: start: 20051215, end: 20060505
  2. RAPTIVA [Suspect]
     Indication: PSORIASIS
     Dosage: 1 ML;QW;SC
     Route: 058
     Dates: start: 20051215, end: 20060419
  3. NEORAL [Concomitant]
  4. METHOTREXATE [Concomitant]
  5. ENBREL [Concomitant]

REACTIONS (6)
  - AUTOIMMUNE DISORDER [None]
  - DRUG TOXICITY [None]
  - HYPOTHYROIDISM [None]
  - MYOSITIS [None]
  - PUSTULAR PSORIASIS [None]
  - RHABDOMYOLYSIS [None]
